FAERS Safety Report 9108777 (Version 1)
Quarter: 2013Q1

REPORT INFORMATION
  Report Type: Spontaneous
  Country: US (occurrence: US)
  Receive Date: 20130222
  Receipt Date: 20130222
  Transmission Date: 20140127
  Serious: Yes (Other)
  Sender: FDA-Public Use
  Company Number: CHPA2012US026416

PATIENT
  Age: 38 Year
  Sex: Female

DRUGS (2)
  1. PRIVATE LABEL STRENGTH UNKNOWN [Suspect]
     Indication: SMOKING CESSATION THERAPY
     Dosage: UNK, UNK
     Route: 062
     Dates: start: 201205, end: 2012
  2. MARIJUANA [Suspect]

REACTIONS (1)
  - Convulsion [Recovered/Resolved]
